FAERS Safety Report 24426631 (Version 1)
Quarter: 2024Q4

REPORT INFORMATION
  Report Type: Spontaneous
  Country: RO (occurrence: RO)
  Receive Date: 20241011
  Receipt Date: 20241011
  Transmission Date: 20250115
  Serious: Yes (Hospitalization, Other)
  Sender: ASTELLAS
  Company Number: RO-ASTELLAS-2024-AER-010639

PATIENT
  Age: 1 Year
  Sex: Female
  Weight: 0.0079 kg

DRUGS (3)
  1. TACROLIMUS [Suspect]
     Active Substance: TACROLIMUS
     Indication: Liver transplant
     Route: 065
  2. TACROLIMUS [Suspect]
     Active Substance: TACROLIMUS
     Route: 065
  3. METHYLPREDNISOLONE [Concomitant]
     Active Substance: METHYLPREDNISOLONE
     Indication: Liver transplant
     Route: 065

REACTIONS (5)
  - Gastroenteritis bacterial [Unknown]
  - Gastroenteritis rotavirus [Unknown]
  - Renal tubular acidosis [Recovering/Resolving]
  - Post transplant lymphoproliferative disorder [Recovering/Resolving]
  - Cytomegalovirus infection [Recovered/Resolved]
